FAERS Safety Report 20533230 (Version 1)
Quarter: 2022Q1

REPORT INFORMATION
  Report Type: Spontaneous
  Country: US (occurrence: None)
  Receive Date: 20220301
  Receipt Date: 20220301
  Transmission Date: 20220423
  Serious: Yes (unspecified)
  Sender: FDA-Public Use
  Company Number: None

PATIENT
  Age: 69 Year
  Sex: Female
  Weight: 85.2 kg

DRUGS (4)
  1. PACLITAXEL [Suspect]
     Active Substance: PACLITAXEL
     Indication: Uterine cancer
     Dosage: OTHER FREQUENCY : ONE TIME INFUSION;?
     Route: 041
     Dates: start: 20220228, end: 20220228
  2. Diphenhydramine 25 mg IVP [Concomitant]
     Dates: start: 20220228, end: 20220228
  3. Hydrocortisone 100 mg IVP [Concomitant]
     Dates: end: 20220228
  4. EpiPen 0.3 [Concomitant]
     Dates: start: 20220228, end: 20220228

REACTIONS (6)
  - Dry throat [None]
  - Somnolence [None]
  - Unresponsive to stimuli [None]
  - Face oedema [None]
  - Hypotension [None]
  - Depressed level of consciousness [None]

NARRATIVE: CASE EVENT DATE: 20220228
